FAERS Safety Report 16123202 (Version 2)
Quarter: 2019Q2

REPORT INFORMATION
  Report Type: Spontaneous
  Country: US (occurrence: US)
  Receive Date: 20190327
  Receipt Date: 20190403
  Transmission Date: 20190711
  Serious: No
  Sender: FDA-Public Use
  Company Number: US-JNJFOC-20190306104

PATIENT
  Sex: Female

DRUGS (2)
  1. MENS ROGAINE EXTRA STRENGTH [Suspect]
     Active Substance: MINOXIDIL
     Indication: ALOPECIA
     Route: 061
  2. MENS ROGAINE EXTRA STRENGTH [Suspect]
     Active Substance: MINOXIDIL
     Indication: ALOPECIA
     Dosage: HALF CAPFUL SOMETIMES A LITTLE MORE OR 1/2-3/4 CAP FULL TWICE DAILY
     Route: 061

REACTIONS (5)
  - Product use issue [Unknown]
  - Product container issue [Unknown]
  - Overdose [Unknown]
  - Pruritus [Recovered/Resolved]
  - Off label use [Unknown]
